FAERS Safety Report 21472663 (Version 1)
Quarter: 2022Q4

REPORT INFORMATION
  Report Type: Spontaneous
  Country: CN (occurrence: CN)
  Receive Date: 20221018
  Receipt Date: 20221018
  Transmission Date: 20230113
  Serious: Yes (Other)
  Sender: FDA-Public Use
  Company Number: CN-MYLANLABS-2022M1114430

PATIENT
  Age: 57 Year
  Sex: Male
  Weight: 69.9 kg

DRUGS (7)
  1. LIPITOR [Suspect]
     Active Substance: ATORVASTATIN CALCIUM
     Indication: Lipids abnormal
     Dosage: 20 MILLIGRAM, QD
     Route: 048
     Dates: start: 20210930, end: 20211008
  2. LIPITOR [Suspect]
     Active Substance: ATORVASTATIN CALCIUM
     Indication: Arteriosclerosis
  3. DABIGATRAN [Suspect]
     Active Substance: DABIGATRAN
     Indication: Anticoagulant therapy
     Dosage: 110 MILLIGRAM, BID
     Route: 048
     Dates: start: 20210930, end: 20211008
  4. Insulin degludec and insulin aspart [Concomitant]
     Indication: Blood glucose
     Dosage: UNK (10)
     Route: 065
     Dates: start: 20210930
  5. Insulin degludec and insulin aspart [Concomitant]
     Dosage: UNK (8)
     Route: 065
     Dates: start: 20210930
  6. ACARBOSE [Concomitant]
     Active Substance: ACARBOSE
     Indication: Blood glucose
     Dosage: 50 MILLIGRAM, TID
     Route: 048
     Dates: start: 20210930
  7. METFORMIN [Concomitant]
     Active Substance: METFORMIN HYDROCHLORIDE
     Indication: Blood glucose
     Dosage: 500 MILLIGRAM, BID
     Route: 048
     Dates: start: 20210930

REACTIONS (1)
  - Haemolytic anaemia [Unknown]

NARRATIVE: CASE EVENT DATE: 20211008
